FAERS Safety Report 10512357 (Version 1)
Quarter: 2014Q4

REPORT INFORMATION
  Report Type: Spontaneous
  Country: PA (occurrence: PA)
  Receive Date: 20141010
  Receipt Date: 20141010
  Transmission Date: 20150528
  Serious: Yes (Hospitalization)
  Sender: FDA-Public Use
  Company Number: PA-GE HEALTHCARE MEDICAL DIAGNOSTICS-VISP-PR-1410S-0445

PATIENT
  Age: 34 Year
  Sex: Male
  Weight: 70 kg

DRUGS (3)
  1. LORATADINE. [Concomitant]
     Active Substance: LORATADINE
  2. VISIPAQUE [Suspect]
     Active Substance: IODIXANOL
     Indication: PRODUCT USED FOR UNKNOWN INDICATION
  3. VISIPAQUE [Suspect]
     Active Substance: IODIXANOL
     Indication: DIAGNOSTIC PROCEDURE
     Route: 037
     Dates: start: 20140926, end: 20140926

REACTIONS (3)
  - Musculoskeletal stiffness [Recovered/Resolved]
  - Hemiparesis [Recovered/Resolved]
  - Headache [Recovered/Resolved]

NARRATIVE: CASE EVENT DATE: 20140926
